FAERS Safety Report 18226295 (Version 1)
Quarter: 2020Q3

REPORT INFORMATION
  Report Type: Spontaneous
  Country: US (occurrence: US)
  Receive Date: 20200902
  Receipt Date: 20200902
  Transmission Date: 20201103
  Serious: No
  Sender: FDA-Public Use
  Company Number: None

PATIENT
  Age: 51 Year
  Sex: Female
  Weight: 54.9 kg

DRUGS (21)
  1. MEDICAL MARJIUANA [Concomitant]
  2. CELECOXIB 100MG [Concomitant]
     Active Substance: CELECOXIB
  3. CLARITIN [Concomitant]
     Active Substance: LORATADINE
  4. DIPHENHYDRAMINE 12.5MG/5ML [Concomitant]
  5. MAALOX ADVANCED MAX STRENGTH 400?40?40MG/5ML [Concomitant]
  6. OXYCODONE ER 40MG [Concomitant]
     Active Substance: OXYCODONE
  7. VITAMIN B?6  50MG [Concomitant]
  8. GINKOBA 40MG [Concomitant]
  9. VITAMIN B12 500MCG [Concomitant]
  10. OXYCONTIN 10MG [Concomitant]
  11. TYLENOL EXTRA STRENGTH [Concomitant]
     Active Substance: ACETAMINOPHEN
  12. CLONAZEPAM 1MG [Concomitant]
     Active Substance: CLONAZEPAM
  13. ONDANSETRON 4MG [Concomitant]
     Active Substance: ONDANSETRON
  14. MIRALAX  17G [Concomitant]
  15. CAPECITABINE. [Suspect]
     Active Substance: CAPECITABINE
     Indication: BREAST CANCER
     Route: 048
     Dates: start: 20200124, end: 20200902
  16. LIPITOR [Concomitant]
     Active Substance: ATORVASTATIN CALCIUM
  17. CARBONATE?VITAMIN D3  1000MG [Concomitant]
  18. LIDOCAINE VISCOUS 2% [Concomitant]
  19. DIAZEPAM 5MG [Concomitant]
     Active Substance: DIAZEPAM
  20. ASPIRIN 81MG [Concomitant]
     Active Substance: ASPIRIN
  21. NYSTATIN 10000 U/ML [Concomitant]

REACTIONS (2)
  - Palmar-plantar erythrodysaesthesia syndrome [None]
  - Therapy non-responder [None]

NARRATIVE: CASE EVENT DATE: 20200902
